FAERS Safety Report 9041103 (Version 1)
Quarter: 2013Q1

REPORT INFORMATION
  Report Type: Spontaneous
  Country: US (occurrence: None)
  Receive Date: 20130124
  Receipt Date: 20130124
  Transmission Date: 20140127
  Serious: No
  Sender: FDA-Public Use
  Company Number: None

PATIENT
  Age: 70 Year
  Sex: Female
  Weight: 86.18 kg

DRUGS (1)
  1. DOXYCYCL HYC 100 MG GENERIC FOR VIBRA TAB 100 MG [Suspect]
     Dosage: 100 MG  4 X DAY
     Dates: start: 20121103, end: 20121125

REACTIONS (1)
  - Periarthritis [None]
